FAERS Safety Report 5744858-2 (Version None)
Quarter: 2008Q2

REPORT INFORMATION
  Report Type: 
  Country: None (occurrence: None)
  Receive Date: 20080516
  Receipt Date: 20080507
  Transmission Date: 20081010
  Serious: Yes (Hospitalization)
  Sender: FDA-Public Use
  Company Number: E2020-02709-SPO-ES

PATIENT
  Age: 80 Year
  Sex: Male

DRUGS (6)
  1. ARICEPT [Suspect]
     Dosage: 10 MG, UNKNOWN, ORAL,MONTHS
     Route: 048
  2. NEURONTIN [Suspect]
     Dosage: 300 MG, UNKNOWN, ORAL, MONTHS
     Route: 048
  3. MEMANTINE HCL [Suspect]
     Indication: DEMENTIA
     Dosage: 10 MG, UNKNOWN, ORAL
     Route: 048
     Dates: start: 20071201, end: 20080106
  4. AMLODIPINE [Concomitant]
  5. PREDNISONE TAB [Concomitant]
  6. TROMALYT (ACETYLSALICYLIC ACID) [Concomitant]

REACTIONS (5)
  - CONFUSIONAL STATE [None]
  - DEPRESSED LEVEL OF CONSCIOUSNESS [None]
  - DISORIENTATION [None]
  - DRUG INTERACTION [None]
  - SOMNOLENCE [None]
